FAERS Safety Report 8525334-0 (Version None)
Quarter: 2012Q3

REPORT INFORMATION
  Report Type: 
  Country: None (occurrence: None)
  Receive Date: 20120720
  Receipt Date: 20120718
  Transmission Date: 20120928
  Serious: Yes (Hospitalization)
  Sender: FDA-Public Use
  Company Number: PHHO2012US003902

PATIENT
  Sex: Female
  Weight: 123.8 kg

DRUGS (3)
  1. CISPLATIN [Suspect]
     Indication: BREAST CANCER
     Dosage: 25 MG/M2, UNK
     Dates: start: 20120105
  2. PACLITAXEL [Suspect]
     Indication: BREAST CANCER
     Dosage: 60 MG/M2, UNK
     Dates: start: 20120105
  3. AFINITOR [Suspect]
     Indication: BREAST CANCER
     Dosage: 5 MG, QD
     Route: 048
     Dates: start: 20120105

REACTIONS (3)
  - DEHYDRATION [None]
  - SYNCOPE [None]
  - URINARY TRACT INFECTION [None]
